FAERS Safety Report 6228915-2 (Version None)
Quarter: 2009Q2

REPORT INFORMATION
  Report Type: 
  Country: None (occurrence: None)
  Receive Date: 20090615
  Receipt Date: 20090609
  Transmission Date: 20091009
  Serious: Yes (Other)
  Sender: FDA-Public Use
  Company Number: US-ROCHE-637334

PATIENT
  Sex: Female

DRUGS (4)
  1. XELODA [Suspect]
     Indication: DRUG USE FOR UNKNOWN INDICATION
     Route: 065
  2. TYKERB [Suspect]
     Indication: DRUG USE FOR UNKNOWN INDICATION
     Route: 048
  3. TYKERB [Suspect]
     Dosage: DOSAGE REDUCED.
     Route: 048
  4. HERCEPTIN [Concomitant]
     Route: 065

REACTIONS (2)
  - MALAISE [None]
  - NEOPLASM PROGRESSION [None]
